FAERS Safety Report 5214153-9 (Version None)
Quarter: 2007Q1

REPORT INFORMATION
  Report Type: 
  Country: None (occurrence: None)
  Receive Date: 20070112
  Receipt Date: 20070105
  Transmission Date: 20070707
  Serious: Yes (Other)
  Sender: FDA-Public Use
  Company Number: GXKR2007GB00546

PATIENT
  Age: 36 Year
  Sex: Female
  Weight: 107 kg

DRUGS (2)
  1. FLUOXETINE [Suspect]
     Indication: ANXIETY
     Dosage: 20 MG, UNK, UNKNOWN
     Dates: start: 20060914
  2. LUSTRAL (SERTRALINE HYDROCHLORIDE) UNKNOWN [Suspect]
     Indication: ANXIETY
     Dosage: SEE IMAGE
     Route: 048
     Dates: start: 20060323, end: 20060914

REACTIONS (6)
  - BLOOD PRESSURE INCREASED [None]
  - CAESAREAN SECTION [None]
  - DRUG EXPOSURE DURING PREGNANCY [None]
  - DRUG INEFFECTIVE [None]
  - PLACENTA PRAEVIA [None]
  - VAGINAL HAEMORRHAGE [None]
